FAERS Safety Report 10189194 (Version 2)
Quarter: 2016Q1

REPORT INFORMATION
  Report Type: Spontaneous
  Country: FR (occurrence: FR)
  Receive Date: 20140522
  Receipt Date: 20160226
  Transmission Date: 20160525
  Serious: Yes (Death, Hospitalization, Other)
  Sender: FDA-Public Use
  Company Number: FR-BAXTER-2014BAX024227

PATIENT
  Age: 65 Year
  Sex: Female

DRUGS (10)
  1. ENDOXAN 1000 MG, POUDRE POUR SOLUTION INJECTABLE [Suspect]
     Active Substance: CYCLOPHOSPHAMIDE
     Dosage: 3RD COURSE
     Route: 042
     Dates: start: 20140227
  2. TAZOCILLINE [Suspect]
     Active Substance: PIPERACILLIN SODIUM\TAZOBACTAM SODIUM
     Indication: FEBRILE BONE MARROW APLASIA
     Route: 042
     Dates: start: 20140305, end: 20140308
  3. GENTAMICINE [Suspect]
     Active Substance: GENTAMICIN
     Indication: FEBRILE BONE MARROW APLASIA
     Route: 042
     Dates: start: 20140305, end: 20140308
  4. TAXOTERE [Suspect]
     Active Substance: DOCETAXEL
     Indication: BREAST CANCER
     Dosage: 1ST COURSE WITH ACTAVIS PRODUCT
     Route: 042
     Dates: start: 20140116
  5. OFLOCET [Suspect]
     Active Substance: OFLOXACIN
     Indication: FEBRILE BONE MARROW APLASIA
     Route: 042
     Dates: start: 20140303, end: 20140304
  6. ENDOXAN 1000 MG, POUDRE POUR SOLUTION INJECTABLE [Suspect]
     Active Substance: CYCLOPHOSPHAMIDE
     Dosage: 2ND COURSE
     Route: 042
     Dates: start: 20140206
  7. AUGMENTIN [Suspect]
     Active Substance: AMOXICILLIN\CLAVULANATE POTASSIUM
     Indication: FEBRILE BONE MARROW APLASIA
     Route: 042
     Dates: start: 20140303, end: 20140304
  8. ENDOXAN 1000 MG, POUDRE POUR SOLUTION INJECTABLE [Suspect]
     Active Substance: CYCLOPHOSPHAMIDE
     Indication: BREAST CANCER
     Dosage: 1ST COURSE
     Route: 042
     Dates: start: 20140116
  9. TAXOTERE [Suspect]
     Active Substance: DOCETAXEL
     Dosage: 3RD COURSE WITH ACCORD PRODUCT
     Route: 042
     Dates: start: 20140227
  10. TAXOTERE [Suspect]
     Active Substance: DOCETAXEL
     Dosage: 2ND COURSE WITH ACTAVIS PRODUCT
     Route: 042
     Dates: start: 20140206

REACTIONS (11)
  - Malnutrition [Fatal]
  - Escherichia bacteraemia [Unknown]
  - Multiple organ dysfunction syndrome [Fatal]
  - Febrile neutropenia [Unknown]
  - Escherichia urinary tract infection [Unknown]
  - Pneumonia bacterial [Recovered/Resolved]
  - Toxic epidermal necrolysis [Fatal]
  - Stenotrophomonas sepsis [Recovering/Resolving]
  - Escherichia sepsis [Unknown]
  - Septic shock [Recovered/Resolved]
  - Pneumonia [Unknown]

NARRATIVE: CASE EVENT DATE: 20140303
